FAERS Safety Report 25155938 (Version 1)
Quarter: 2025Q2

REPORT INFORMATION
  Report Type: Spontaneous
  Country: CN (occurrence: CN)
  Receive Date: 20250403
  Receipt Date: 20250403
  Transmission Date: 20250716
  Serious: Yes (Life-Threatening, Hospitalization, Other)
  Sender: BAYER
  Company Number: CN-BAYER-2025A045155

PATIENT
  Age: 47 Year
  Sex: Female
  Weight: 65 kg

DRUGS (1)
  1. ULTRAVIST [Suspect]
     Active Substance: IOPROMIDE
     Indication: Angiocardiogram
     Dosage: 37 G, QD
     Route: 041
     Dates: start: 20250326, end: 20250326

REACTIONS (12)
  - Anaphylactic shock [Recovering/Resolving]
  - Electrocardiogram T wave inversion [None]
  - Palpitations [Recovering/Resolving]
  - Dizziness [Recovering/Resolving]
  - Rash erythematous [None]
  - Face oedema [Recovering/Resolving]
  - Eye oedema [None]
  - Oedema mouth [None]
  - Lip oedema [None]
  - Chills [Recovering/Resolving]
  - Blood pressure decreased [Recovered/Resolved]
  - Respiratory rate increased [Not Recovered/Not Resolved]

NARRATIVE: CASE EVENT DATE: 20250326
